FAERS Safety Report 4532852-9 (Version None)
Quarter: 2004Q4

REPORT INFORMATION
  Report Type: 
  Country: None (occurrence: None)
  Receive Date: 20041220
  Receipt Date: 20041213
  Transmission Date: 20050328
  Serious: Yes (Death, Life-Threatening, Hospitalization)
  Sender: FDA-Public Use
  Company Number: OXCD20040001

PATIENT
  Age: 13 Year
  Sex: Male

DRUGS (1)
  1. OXYCODONE (SAME AS PERCOLONE) [Suspect]
     Dates: start: 20030101, end: 20030101

REACTIONS (7)
  - ANOXIA [None]
  - BRAIN OEDEMA [None]
  - COMA [None]
  - HYPOTENSION [None]
  - INCREASED BRONCHIAL SECRETION [None]
  - RHABDOMYOLYSIS [None]
  - SPUTUM DISCOLOURED [None]
